FAERS Safety Report 6262987-4 (Version None)
Quarter: 2009Q3

REPORT INFORMATION
  Report Type: 
  Country: None (occurrence: None)
  Receive Date: 20090710
  Receipt Date: 20090701
  Transmission Date: 20100115
  Serious: Yes (Other)
  Sender: FDA-Public Use
  Company Number: US-JNJCH-2009018108

PATIENT
  Age: 34 Year
  Sex: Male
  Weight: 95.3 kg

DRUGS (1)
  1. LISTERINE ANTISEPTIC MOUTHWASH [Suspect]
     Indication: DRUG USE FOR UNKNOWN INDICATION
     Dosage: TEXT:2-3 BOTTLES A DAY FOR 2-3 DAYS
     Route: 048

REACTIONS (3)
  - INCORRECT ROUTE OF DRUG ADMINISTRATION [None]
  - OVERDOSE [None]
  - SOMNOLENCE [None]
